FAERS Safety Report 12582448 (Version 1)
Quarter: 2016Q3

REPORT INFORMATION
  Report Type: Spontaneous
  Country: US (occurrence: None)
  Receive Date: 20160721
  Receipt Date: 20160721
  Transmission Date: 20161109
  Serious: Yes (Other)
  Sender: FDA-Public Use
  Company Number: None

PATIENT
  Age: 38 Year
  Sex: Female
  Weight: 79.38 kg

DRUGS (9)
  1. ACETAMINOPHEN\HYDROCODONE BITARTRATE [Concomitant]
     Active Substance: ACETAMINOPHEN\HYDROCODONE BITARTRATE
  2. VITAMIN D [Concomitant]
     Active Substance: CHOLECALCIFEROL
  3. MYRBETRIQ [Concomitant]
     Active Substance: MIRABEGRON
  4. FLUOXETINE [Concomitant]
     Active Substance: FLUOXETINE HYDROCHLORIDE
  5. LEVOXYL [Concomitant]
     Active Substance: LEVOTHYROXINE SODIUM
  6. NUVIGIL [Concomitant]
     Active Substance: ARMODAFINIL
  7. ELMIRAN [Concomitant]
  8. ALEO VERA [Concomitant]
  9. ARMODAFINIL 250MG MYLAN [Suspect]
     Active Substance: ARMODAFINIL
     Indication: NARCOLEPSY
     Dosage: 30 TABLETS 1 Q AM ORAL
     Route: 048
     Dates: start: 20160701, end: 20160709

REACTIONS (5)
  - Drug effect decreased [None]
  - Depression [None]
  - Headache [None]
  - Product solubility abnormal [None]
  - Product substitution issue [None]

NARRATIVE: CASE EVENT DATE: 20160709
